FAERS Safety Report 13507478 (Version 1)
Quarter: 2017Q2

REPORT INFORMATION
  Report Type: Spontaneous
  Country: US (occurrence: US)
  Receive Date: 20170503
  Receipt Date: 20170503
  Transmission Date: 20170830
  Serious: Yes (Other)
  Sender: FDA-Public Use
  Company Number: US-AMGEN-USASP2017064293

PATIENT
  Sex: Female

DRUGS (1)
  1. ENBREL [Suspect]
     Active Substance: ETANERCEPT
     Indication: RHEUMATOID ARTHRITIS
     Dosage: 50 MG, QWK
     Route: 058

REACTIONS (10)
  - Eye operation [Unknown]
  - Muscle spasms [Unknown]
  - Glaucoma [Unknown]
  - Fall [Unknown]
  - Depressed mood [Unknown]
  - Rheumatoid arthritis [Unknown]
  - Cardiac failure congestive [Unknown]
  - Vitreous floaters [Unknown]
  - Drug dose omission [Unknown]
  - Neoplasm malignant [Unknown]
